FAERS Safety Report 8291002 (Version 2)
Quarter: 2013Q2

REPORT INFORMATION
  Report Type: Spontaneous
  Country: US (occurrence: None)
  Receive Date: 20111122
  Receipt Date: 20120426
  Transmission Date: 20140414
  Serious: No
  Sender: FDA-Public Use
  Company Number: PHHY2011US57779

PATIENT
  Age: 64 Year
  Sex: Female

DRUGS (18)
  1. GILENYA [Suspect]
     Indication: MULTIPLE SCLEROSIS
     Route: 048
     Dates: start: 20110401
  2. AMANTADINE (AMANTADINE) [Concomitant]
  3. ASPIRIN ^BAYER^ (ACETYLSALICYLIC ACID) [Concomitant]
  4. BACLOFEN (BACLOFEN) [Concomitant]
  5. FLUTICASONE (FLUTICASONE) [Concomitant]
  6. TERAZOSIN (TERAZOSIN) (TERAZOSIN) [Concomitant]
  7. ATORVASTATIN (ATORVASTATIN) [Concomitant]
  8. CITALOPRAM (CITALOPRAM) [Concomitant]
  9. FAMPRIDINE (FAMPRIDINE) [Concomitant]
  10. MODAFINIL (MODAFINIL) [Concomitant]
  11. B COMPLEX (NICOTINAMIDE, PYRIDOXINE HYDROCHLORIDE, RIBOFLAVIN, THIAMINE HYDROCHLORIDE) [Concomitant]
  12. B-PLEX (CYANOCOBALAMIN, NICOTINAMIDE, NICOTINIC ACID, PANTHENOL, PYRIDOXINE, RIBOFLAVIN, THIAMINE) [Concomitant]
  13. VITAMIN B COMPLEX (CALCIUM PANTOTHENATE, NICOTINAMIDE, PYRIDOXINE HYDROCHLORIDE, RIBOFLAVIN, THIAMINE HYDROCHLORIDE) [Concomitant]
  14. B-JECT [Concomitant]
  15. BECOMJECT [Concomitant]
  16. FOSAMAX PLUS D (ALENDRONATE SODIUM, COLECALCIFEROL) [Concomitant]
  17. PROVIGIL (MODAFINIL) [Concomitant]
  18. FLUTICASONE PROPIONATE (FLUTICASONE PROPIONATE) (FLUTICASONE PROPIONATE) [Concomitant]

REACTIONS (2)
  - HEART RATE INCREASED [None]
  - Alopecia [None]
